FAERS Safety Report 8215435-9 (Version None)
Quarter: 2012Q1

REPORT INFORMATION
  Report Type: 
  Country: None (occurrence: None)
  Receive Date: 20120316
  Receipt Date: 20120306
  Transmission Date: 20120608
  Serious: Yes (Hospitalization)
  Sender: FDA-Public Use
  Company Number: US-ELI_LILLY_AND_COMPANY-US201111005399

PATIENT
  Age: 76 Year
  Sex: Female

DRUGS (29)
  1. VENTOLIN [Concomitant]
  2. LEVOTHYROXINE SODIUM [Concomitant]
  3. MAGNESIUM OXIDE [Concomitant]
  4. RISPERDAL [Concomitant]
  5. FLUDROCORTISON [Concomitant]
  6. LOVAZA [Concomitant]
  7. ASPIRIN [Concomitant]
  8. PREDNISONE TAB [Concomitant]
  9. GENTAMICIN SULFATE [Concomitant]
  10. MAG OXIDE [Concomitant]
  11. MIRALAX [Concomitant]
  12. FORTEO [Suspect]
     Dosage: 20 UG, QD
     Route: 065
  13. CALCIUM [Concomitant]
  14. ADVAIR DISKUS 100/50 [Concomitant]
  15. SIMVASTATIN [Concomitant]
  16. VITAMIN D [Concomitant]
  17. COUMADIN [Concomitant]
  18. AMBIEN [Concomitant]
  19. ATENOLOL [Concomitant]
  20. FORTEO [Suspect]
     Indication: OSTEOPOROSIS
     Dosage: 20 UG, QD
     Route: 065
  21. MULTI-VITAMIN [Concomitant]
  22. FLONASE [Concomitant]
  23. HYDROCODONE BITARTRATE [Concomitant]
  24. TRAMADOL HCL [Concomitant]
  25. METAXALONE [Concomitant]
  26. EFFEXOR [Concomitant]
  27. MULTI-VITAMINS [Concomitant]
  28. VESICARE [Concomitant]
  29. CALCIUM CITRATE [Concomitant]

REACTIONS (3)
  - AMNESIA [None]
  - MALAISE [None]
  - SPINAL FRACTURE [None]
